FAERS Safety Report 18908532 (Version 7)
Quarter: 2021Q2

REPORT INFORMATION
  Report Type: Spontaneous
  Country: JP (occurrence: JP)
  Receive Date: 20210218
  Receipt Date: 20210419
  Transmission Date: 20210717
  Serious: Yes (Death, Hospitalization)
  Sender: FDA-Public Use
  Company Number: JP-JNJFOC-20210229388

PATIENT
  Age: 49 Year
  Sex: Male

DRUGS (14)
  1. TREVICTA [Suspect]
     Active Substance: PALIPERIDONE PALMITATE
     Indication: SCHIZOPHRENIA
     Route: 030
     Dates: start: 20210106
  2. XEPLION [Suspect]
     Active Substance: PALIPERIDONE PALMITATE
     Route: 030
     Dates: start: 2020, end: 2020
  3. XEPLION [Suspect]
     Active Substance: PALIPERIDONE PALMITATE
     Route: 030
     Dates: start: 20201202, end: 20201202
  4. LIXIANA [Suspect]
     Active Substance: EDOXABAN TOSYLATE
     Indication: DEEP VEIN THROMBOSIS
     Route: 048
     Dates: start: 20190413
  5. TREVICTA [Suspect]
     Active Substance: PALIPERIDONE PALMITATE
  6. LAXOBERON [Concomitant]
     Active Substance: SODIUM PICOSULFATE
     Dosage: DOSE UNKNOWN, P.R.N
     Route: 048
  7. TREVICTA [Suspect]
     Active Substance: PALIPERIDONE PALMITATE
  8. BROTIZOLAM [Concomitant]
     Active Substance: BROTIZOLAM
     Dosage: DOSE UNKNOWN, P.R.N
     Route: 048
  9. XEPLION [Suspect]
     Active Substance: PALIPERIDONE PALMITATE
     Dosage: PALIPERIDONE PALMITATE:25MG
     Route: 030
     Dates: start: 20200101, end: 2020
  10. XEPLION [Suspect]
     Active Substance: PALIPERIDONE PALMITATE
     Indication: SCHIZOPHRENIA
     Dosage: DOSE UNKNOWN
     Route: 030
     Dates: start: 201711, end: 2020
  11. XEPLION [Suspect]
     Active Substance: PALIPERIDONE PALMITATE
     Dosage: PALIPERIDONE PALMITATE:25MG
     Route: 030
     Dates: start: 20180302, end: 20191204
  12. XEPLION [Suspect]
     Active Substance: PALIPERIDONE PALMITATE
     Route: 030
     Dates: start: 20201007, end: 20201007
  13. XEPLION [Suspect]
     Active Substance: PALIPERIDONE PALMITATE
     Dosage: GLUTEAL
     Route: 030
     Dates: start: 20200909, end: 20200909
  14. XEPLION [Suspect]
     Active Substance: PALIPERIDONE PALMITATE
     Route: 030
     Dates: start: 20201104, end: 20201104

REACTIONS (14)
  - Fall [Unknown]
  - Face oedema [Unknown]
  - Subdural haematoma [Fatal]
  - Deep vein thrombosis [Unknown]
  - Peripheral swelling [Unknown]
  - Insomnia [Unknown]
  - Pulmonary embolism [Unknown]
  - Contusion [Unknown]
  - Dyspnoea [Unknown]
  - Alcoholism [Unknown]
  - Dizziness [Unknown]
  - Hypertension [Unknown]
  - Gait disturbance [Unknown]
  - Constipation [Unknown]

NARRATIVE: CASE EVENT DATE: 2019
